FAERS Safety Report 25111779 (Version 6)
Quarter: 2025Q2

REPORT INFORMATION
  Report Type: Spontaneous
  Country: US (occurrence: US)
  Receive Date: 20250324
  Receipt Date: 20250616
  Transmission Date: 20250717
  Serious: Yes (Other)
  Sender: SUNOVION
  Company Number: US-SMPA-2025SPA003305

PATIENT

DRUGS (5)
  1. ORGOVYX [Suspect]
     Active Substance: RELUGOLIX
     Indication: Prostate cancer
     Route: 048
  2. ORGOVYX [Suspect]
     Active Substance: RELUGOLIX
     Dosage: 120 MG, QD
     Route: 048
     Dates: start: 20250307
  3. ORGOVYX [Suspect]
     Active Substance: RELUGOLIX
     Route: 048
     Dates: start: 20250310
  4. ORGOVYX [Suspect]
     Active Substance: RELUGOLIX
     Route: 048
     Dates: start: 20250311
  5. MOUNJARO [Concomitant]
     Active Substance: TIRZEPATIDE
     Route: 065

REACTIONS (16)
  - Diabetes mellitus [Unknown]
  - Amnesia [Unknown]
  - Brain fog [Unknown]
  - Feeling abnormal [Unknown]
  - Sleep disorder [Unknown]
  - Feeling drunk [Unknown]
  - Hypoacusis [Unknown]
  - Sinusitis [Unknown]
  - Somnolence [Unknown]
  - Dizziness [Recovering/Resolving]
  - Fatigue [Unknown]
  - Hot flush [Unknown]
  - Arthralgia [Unknown]
  - Myalgia [Unknown]
  - Product dose omission issue [Unknown]
  - Product quality issue [Unknown]
